FAERS Safety Report 9855348 (Version 4)
Quarter: 2015Q1

REPORT INFORMATION
  Report Type: Spontaneous
  Country: US (occurrence: US)
  Receive Date: 20140130
  Receipt Date: 20150327
  Transmission Date: 20150721
  Serious: Yes (Life-Threatening, Hospitalization)
  Sender: FDA-Public Use
  Company Number: US-BAYER-2014-014276

PATIENT
  Age: 24 Year
  Sex: Female
  Weight: 50.79 kg

DRUGS (1)
  1. MIRENA [Suspect]
     Active Substance: LEVONORGESTREL
     Indication: CONTRACEPTION
     Dosage: 20 MCG/24HR, CONT
     Route: 015
     Dates: start: 20111216, end: 20120424

REACTIONS (11)
  - Genital haemorrhage [None]
  - Pain [None]
  - General physical health deterioration [None]
  - Depression [Not Recovered/Not Resolved]
  - Device issue [None]
  - Anxiety [Not Recovered/Not Resolved]
  - Abdominal pain lower [None]
  - Nausea [None]
  - Fear [Not Recovered/Not Resolved]
  - Uterine perforation [None]
  - Injury [None]

NARRATIVE: CASE EVENT DATE: 201112
